FAERS Safety Report 17660205 (Version 1)
Quarter: 2020Q2

REPORT INFORMATION
  Report Type: Spontaneous
  Country: US (occurrence: US)
  Receive Date: 20200413
  Receipt Date: 20200413
  Transmission Date: 20200713
  Serious: No
  Sender: FDA-Public Use
  Company Number: US-MYLANLABS-2020M1034643

PATIENT
  Sex: Male

DRUGS (2)
  1. CLONIDINE. [Suspect]
     Active Substance: CLONIDINE
     Indication: AUTISM SPECTRUM DISORDER
     Dosage: HALF OF A PATCH FOR HIM EVERY 5-6 DAYS
     Route: 062
  2. RISPERIDONE. [Concomitant]
     Active Substance: RISPERIDONE

REACTIONS (2)
  - Wrong technique in product usage process [Unknown]
  - Off label use [Unknown]
